FAERS Safety Report 7232838-X (Version None)
Quarter: 2011Q1

REPORT INFORMATION
  Report Type: 
  Country: None (occurrence: None)
  Receive Date: 20110110
  Receipt Date: 20101229
  Transmission Date: 20110831
  Serious: Yes (Hospitalization)
  Sender: FDA-Public Use
  Company Number: 1000013788

PATIENT
  Age: 30 Year
  Sex: Female

DRUGS (7)
  1. METHADONE (METHADONE) [Suspect]
     Dosage: 80 MG (80 MG, 1 IN 1 D)
  2. CANNABIS (CANNABIS SATIVA) [Suspect]
     Indication: DRUG ABUSE
  3. ALCOHOL (ETHANOL) [Suspect]
     Dosage: (1 LIT)
  4. CITALOPRAM (CITALOPRAM HYDROBROMIDE) [Suspect]
     Dosage: 20 MG (20 MG, 1 IN 1 D)
  5. COCAINE (COCAINE) [Suspect]
     Indication: DRUG ABUSE
  6. CODEINE (CODEINE) [Suspect]
  7. HEROIN (DIAMORPHINE) [Suspect]
     Indication: DRUG ABUSE

REACTIONS (11)
  - BLOOD MAGNESIUM DECREASED [None]
  - ELECTROCARDIOGRAM QT PROLONGED [None]
  - EJECTION FRACTION DECREASED [None]
  - ACUTE CORONARY SYNDROME [None]
  - ELECTROCARDIOGRAM ST SEGMENT ABNORMAL [None]
  - HYPOKALAEMIA [None]
  - GAMMA-GLUTAMYLTRANSFERASE INCREASED [None]
  - FALL [None]
  - ASPARTATE AMINOTRANSFERASE INCREASED [None]
  - SYNCOPE [None]
  - ALANINE AMINOTRANSFERASE INCREASED [None]
